FAERS Safety Report 7653623-0 (Version None)
Quarter: 2011Q3

REPORT INFORMATION
  Report Type: 
  Country: None (occurrence: None)
  Receive Date: 20110803
  Receipt Date: 20110803
  Transmission Date: 20111222
  Serious: Yes (Life-Threatening, Hospitalization, Other)
  Sender: FDA-Public Use
  Company Number: None

PATIENT
  Age: 24 Year
  Sex: Male
  Weight: 81.646 kg

DRUGS (1)
  1. MEFLOQUINE HYDROCHLORIDE [Suspect]
     Dosage: 250MG
     Route: 048
     Dates: start: 20110325, end: 20110429

REACTIONS (19)
  - BALANCE DISORDER [None]
  - HALLUCINATIONS, MIXED [None]
  - INSOMNIA [None]
  - APHASIA [None]
  - FEELING ABNORMAL [None]
  - PERSONALITY CHANGE [None]
  - DELIRIUM [None]
  - MOOD SWINGS [None]
  - SPEECH DISORDER [None]
  - CONFUSIONAL STATE [None]
  - MUSCLE SPASMS [None]
  - EMOTIONAL POVERTY [None]
  - AMNESIA [None]
  - VISION BLURRED [None]
  - PARANOIA [None]
  - DEAFNESS [None]
  - DEPRESSION [None]
  - PSYCHOTIC DISORDER [None]
  - DISSOCIATION [None]
